FAERS Safety Report 10167329 (Version 1)
Quarter: 2014Q2

REPORT INFORMATION
  Report Type: Spontaneous
  Country: US (occurrence: US)
  Receive Date: 20140512
  Receipt Date: 20140512
  Transmission Date: 20141212
  Serious: Yes (Other)
  Sender: FDA-Public Use
  Company Number: US-PFIZER INC-2014129382

PATIENT
  Age: 43 Year
  Sex: Female
  Weight: 93.42 kg

DRUGS (3)
  1. SERTRALINE HCL [Suspect]
     Indication: DEPRESSION
     Dosage: 50 MG, DAILY
  2. SERTRALINE HCL [Suspect]
     Indication: ANXIETY
  3. COREG [Concomitant]
     Indication: HYPERTENSION
     Dosage: 6.25 MG, 2X/DAY

REACTIONS (2)
  - Coeliac disease [Unknown]
  - Rash [Unknown]
